FAERS Safety Report 4728537-6 (Version None)
Quarter: 2005Q3

REPORT INFORMATION
  Report Type: 
  Country: None (occurrence: None)
  Receive Date: 20050727
  Receipt Date: 20050714
  Transmission Date: 20060218
  Serious: Yes (Life-Threatening, Other)
  Sender: FDA-Public Use
  Company Number: 2005093749

PATIENT
  Age: 53 Year
  Sex: Female

DRUGS (4)
  1. CELEBREX [Suspect]
     Indication: OSTEOARTHRITIS
     Dosage: 600 MG (200 MG) ORAL
     Route: 048
     Dates: start: 20050625, end: 20050625
  2. TENORMIN [Concomitant]
  3. WELLBUTRIN XL [Concomitant]
  4. PRILOSEC [Concomitant]

REACTIONS (21)
  - ANAPHYLACTIC SHOCK [None]
  - ANXIETY [None]
  - BLOOD PRESSURE SYSTOLIC DECREASED [None]
  - DRUG INEFFECTIVE [None]
  - DYSPNOEA [None]
  - FIBROMYALGIA [None]
  - HYPERHIDROSIS [None]
  - LOSS OF CONSCIOUSNESS [None]
  - NAUSEA [None]
  - NO REACTION ON PREVIOUS EXPOSURE TO DRUG [None]
  - PALMAR ERYTHEMA [None]
  - PANIC REACTION [None]
  - PHARMACEUTICAL PRODUCT COMPLAINT [None]
  - PRURITUS [None]
  - SPEECH DISORDER [None]
  - SWOLLEN TONGUE [None]
  - SYNCOPE [None]
  - TACHYCARDIA [None]
  - THROAT IRRITATION [None]
  - THROAT TIGHTNESS [None]
  - URTICARIA [None]
